FAERS Safety Report 25428679 (Version 1)
Quarter: 2025Q2

REPORT INFORMATION
  Report Type: Spontaneous
  Country: US (occurrence: US)
  Receive Date: 20250612
  Receipt Date: 20250612
  Transmission Date: 20250717
  Serious: No
  Sender: MYLAN
  Company Number: US-MYLANLABS-2025M1046945

PATIENT
  Age: 66 Year

DRUGS (16)
  1. LIPITOR [Suspect]
     Active Substance: ATORVASTATIN CALCIUM
     Indication: Product used for unknown indication
  2. LIPITOR [Suspect]
     Active Substance: ATORVASTATIN CALCIUM
     Route: 065
  3. LIPITOR [Suspect]
     Active Substance: ATORVASTATIN CALCIUM
     Route: 065
  4. LIPITOR [Suspect]
     Active Substance: ATORVASTATIN CALCIUM
  5. TESTOPEL [Suspect]
     Active Substance: TESTOSTERONE
     Indication: Product used for unknown indication
  6. TESTOPEL [Suspect]
     Active Substance: TESTOSTERONE
  7. TESTOPEL [Suspect]
     Active Substance: TESTOSTERONE
     Route: 065
  8. TESTOPEL [Suspect]
     Active Substance: TESTOSTERONE
     Route: 065
  9. TESTOPEL [Suspect]
     Active Substance: TESTOSTERONE
  10. TESTOPEL [Suspect]
     Active Substance: TESTOSTERONE
  11. TESTOPEL [Suspect]
     Active Substance: TESTOSTERONE
     Route: 065
  12. TESTOPEL [Suspect]
     Active Substance: TESTOSTERONE
     Route: 065
  13. ALCOHOL [Suspect]
     Active Substance: ALCOHOL
     Indication: Product used for unknown indication
  14. ALCOHOL [Suspect]
     Active Substance: ALCOHOL
     Route: 065
  15. ALCOHOL [Suspect]
     Active Substance: ALCOHOL
     Route: 065
  16. ALCOHOL [Suspect]
     Active Substance: ALCOHOL

REACTIONS (2)
  - Aspartate aminotransferase increased [Not Recovered/Not Resolved]
  - Alanine aminotransferase increased [Not Recovered/Not Resolved]

NARRATIVE: CASE EVENT DATE: 20220101
